FAERS Safety Report 18290889 (Version 2)
Quarter: 2020Q4

REPORT INFORMATION
  Report Type: Report from Study
  Country: CA (occurrence: CA)
  Receive Date: 20200921
  Receipt Date: 20201014
  Transmission Date: 20210113
  Serious: Yes (Other)
  Sender: FDA-Public Use
  Company Number: CA-JNJFOC-20200925743

PATIENT
  Age: 40 Year
  Sex: Female
  Weight: 79.9 kg

DRUGS (2)
  1. STELARA [Suspect]
     Active Substance: USTEKINUMAB
     Route: 058
  2. STELARA [Suspect]
     Active Substance: USTEKINUMAB
     Indication: CROHN^S DISEASE
     Route: 058
     Dates: start: 20190227

REACTIONS (3)
  - Mammoplasty [Unknown]
  - Injection site reaction [Unknown]
  - Reaction to preservatives [Unknown]

NARRATIVE: CASE EVENT DATE: 20200831
